FAERS Safety Report 25613470 (Version 1)
Quarter: 2025Q3

REPORT INFORMATION
  Report Type: Spontaneous
  Country: US (occurrence: None)
  Receive Date: 20250728
  Receipt Date: 20250728
  Transmission Date: 20251021
  Serious: No
  Sender: FDA-CTU
  Company Number: None

PATIENT
  Age: 68 Year
  Sex: Female

DRUGS (2)
  1. QSYMIA [Suspect]
     Active Substance: PHENTERMINE HYDROCHLORIDE\TOPIRAMATE
     Indication: Product used for unknown indication
  2. PHENTERMINE [Suspect]
     Active Substance: PHENTERMINE

REACTIONS (3)
  - Product use issue [None]
  - Product dose confusion [None]
  - Palpitations [None]

NARRATIVE: CASE EVENT DATE: 20250728
